FAERS Safety Report 9669430 (Version 1)
Quarter: 2013Q4

REPORT INFORMATION
  Report Type: Spontaneous
  Country: FR (occurrence: None)
  Receive Date: 20131101
  Receipt Date: 20131101
  Transmission Date: 20140711
  Serious: Yes (Disabling)
  Sender: FDA-Public Use
  Company Number: 2013-FR-002430

PATIENT
  Age: 37 Year
  Sex: Female

DRUGS (3)
  1. XYREM [Suspect]
     Indication: HYPERSOMNIA
     Route: 048
     Dates: start: 20130801, end: 20130910
  2. MODIODAL [Concomitant]
  3. MELATONIN [Concomitant]

REACTIONS (8)
  - Vertigo [None]
  - Malaise [None]
  - Inappropriate schedule of drug administration [None]
  - Hyperhidrosis [None]
  - Diarrhoea [None]
  - Feeling drunk [None]
  - Nausea [None]
  - Fatigue [None]
